FAERS Safety Report 8272475-1 (Version None)
Quarter: 2012Q2

REPORT INFORMATION
  Report Type: 
  Country: None (occurrence: None)
  Receive Date: 20120410
  Receipt Date: 20120330
  Transmission Date: 20120825
  Serious: Yes (Hospitalization)
  Sender: FDA-Public Use
  Company Number: US-CELGENEUS-163-CCAZA-12022492

PATIENT
  Age: 78 Year
  Sex: Male
  Weight: 95.4 kg

DRUGS (8)
  1. AMIODARONE HCL [Concomitant]
     Route: 065
  2. AZACITIDINE [Suspect]
     Dosage: 75 MILLIGRAM/SQ. METER
     Route: 058
     Dates: start: 20111101
  3. AZACITIDINE [Suspect]
     Dosage: 75 MILLIGRAM/SQ. METER
     Route: 058
     Dates: start: 20120106, end: 20120112
  4. CEFEPIME [Concomitant]
     Route: 065
  5. ANTIBIOTICS [Concomitant]
     Route: 065
     Dates: start: 20120201
  6. GEMTUZUMAB [Suspect]
     Dosage: 3 MILLIGRAM/SQ. METER
     Route: 041
     Dates: start: 20120106, end: 20120113
  7. GEMTUZUMAB [Suspect]
     Dosage: 3 MILLIGRAM/SQ. METER
     Route: 041
     Dates: start: 20111101
  8. HYDROXYUREA [Concomitant]
     Dosage: 1500 MILLIGRAM
     Route: 048
     Dates: start: 20111101

REACTIONS (4)
  - BACTERAEMIA [None]
  - PSEUDOMONAS INFECTION [None]
  - HEPATIC FAILURE [None]
  - DEVICE RELATED INFECTION [None]
